FAERS Safety Report 9389061 (Version 3)
Quarter: 2013Q3

REPORT INFORMATION
  Report Type: Report from Study
  Country: BR (occurrence: BR)
  Receive Date: 20130708
  Receipt Date: 20130805
  Transmission Date: 20140515
  Serious: Yes (Other)
  Sender: FDA-Public Use
  Company Number: PHHY2013BR072290

PATIENT
  Sex: Female

DRUGS (5)
  1. TRILEPTAL [Suspect]
     Indication: CONVULSION
     Dosage: 1 DF, AT NIGHT
     Route: 048
  2. RIVOTRIL [Concomitant]
     Indication: CONVULSION
     Dosage: 1 DF, DAILY
     Route: 048
  3. OMEGA 3 [Concomitant]
     Dosage: 1 DF, DAILY
     Route: 048
  4. GINKGO BILOBA [Concomitant]
     Indication: LABYRINTHITIS
     Dosage: 1 DF, DAILY
     Route: 048
  5. PAROXETINE [Concomitant]
     Indication: CONVULSION
     Dosage: 1 DF, DAILY
     Route: 048

REACTIONS (6)
  - Glaucoma [Recovering/Resolving]
  - Syncope [Recovering/Resolving]
  - Hypertension [Recovering/Resolving]
  - Anticonvulsant drug level below therapeutic [Recovering/Resolving]
  - Blood cholesterol increased [Recovering/Resolving]
  - Drug ineffective [Recovering/Resolving]
